FAERS Safety Report 10971010 (Version 1)
Quarter: 2015Q1

REPORT INFORMATION
  Report Type: Spontaneous
  Country: US (occurrence: None)
  Receive Date: 20150330
  Receipt Date: 20150330
  Transmission Date: 20150721
  Serious: Yes (Hospitalization)
  Sender: FDA-Public Use
  Company Number: None

PATIENT
  Age: 61 Year
  Sex: Male
  Weight: 64.4 kg

DRUGS (1)
  1. ERBITUX [Suspect]
     Active Substance: CETUXIMAB
     Dates: end: 20131008

REACTIONS (11)
  - Dysphagia [None]
  - Failure to thrive [None]
  - Mucosal inflammation [None]
  - Muscle atrophy [None]
  - Constipation [None]
  - Decreased appetite [None]
  - Feeding disorder [None]
  - Lipoatrophy [None]
  - Hypotension [None]
  - Nausea [None]
  - Weight decreased [None]

NARRATIVE: CASE EVENT DATE: 20131022
